FAERS Safety Report 6330725-2 (Version None)
Quarter: 2009Q3

REPORT INFORMATION
  Report Type: 
  Country: None (occurrence: None)
  Receive Date: 20090827
  Receipt Date: 20090819
  Transmission Date: 20100115
  Serious: Yes (Other)
  Sender: FDA-Public Use
  Company Number: GB-PFIZER INC-2009256627

PATIENT
  Age: 30 Year

DRUGS (9)
  1. FLUCONAZOLE [Suspect]
     Indication: VULVOVAGINAL CANDIDIASIS
     Dosage: 150 MG, 1X/DAY
     Route: 048
     Dates: start: 20090806
  2. CALCICHEW-D3 [Concomitant]
  3. FERROUS SULFATE TAB [Concomitant]
  4. HUMALOG [Concomitant]
     Indication: TYPE 1 DIABETES MELLITUS
     Dosage: UNK
  5. LANSOPRAZOLE [Concomitant]
  6. LANTUS [Concomitant]
     Indication: TYPE 1 DIABETES MELLITUS
     Dosage: UNK
  7. LEVOTHYROXINE SODIUM [Concomitant]
     Dosage: UNK
  8. LORAZEPAM [Concomitant]
     Dosage: UNK
  9. QUETIAPINE [Concomitant]
     Dosage: UNK

REACTIONS (4)
  - DYSPNOEA [None]
  - GLOSSITIS [None]
  - HYPERSENSITIVITY [None]
  - STOMATITIS [None]
